FAERS Safety Report 4935139-5 (Version None)
Quarter: 2006Q1

REPORT INFORMATION
  Report Type: 
  Country: None (occurrence: None)
  Receive Date: 20060306
  Receipt Date: 20060306
  Transmission Date: 20060701
  Serious: Yes (Hospitalization)
  Sender: FDA-Public Use
  Company Number: None

PATIENT
  Age: 26 Year
  Sex: Female
  Weight: 56.6996 kg

DRUGS (4)
  1. WELLBUTRIN XL [Suspect]
     Indication: DEPRESSION
     Dosage: 1 TABLET BID PO   :  1 TABLET QD PO
     Route: 048
     Dates: start: 20031230, end: 20040501
  2. WELLBUTRIN XL [Suspect]
     Indication: SEXUAL DYSFUNCTION
     Dosage: 1 TABLET BID PO   :  1 TABLET QD PO
     Route: 048
     Dates: start: 20031230, end: 20040501
  3. WELLBUTRIN XL [Suspect]
     Indication: DEPRESSION
     Dosage: 1 TABLET BID PO   :  1 TABLET QD PO
     Route: 048
     Dates: start: 20040501, end: 20060112
  4. WELLBUTRIN XL [Suspect]
     Indication: SEXUAL DYSFUNCTION
     Dosage: 1 TABLET BID PO   :  1 TABLET QD PO
     Route: 048
     Dates: start: 20040501, end: 20060112

REACTIONS (2)
  - CONVULSION [None]
  - EPILEPSY [None]
